FAERS Safety Report 21714406 (Version 1)
Quarter: 2022Q4

REPORT INFORMATION
  Report Type: Spontaneous
  Country: US (occurrence: None)
  Receive Date: 20221209
  Receipt Date: 20221209
  Transmission Date: 20230113
  Serious: Yes (Death)
  Sender: FDA-Public Use
  Company Number: None

PATIENT
  Age: 79 Year
  Sex: Female
  Weight: 38.56 kg

DRUGS (10)
  1. TEMOZOLOMIDE [Suspect]
     Active Substance: TEMOZOLOMIDE
     Indication: Brain neoplasm malignant
     Dosage: 80MG DAILY ORAL
     Route: 048
  2. ATORVASTATIN [Concomitant]
     Dosage: FREQUENCY : DAILY;?
     Route: 048
  3. LEVETIRACETAM [Concomitant]
  4. LOPERAMIDE [Concomitant]
  5. OCUVITE [Concomitant]
  6. ONDANSETRON [Concomitant]
  7. PROCHLORPERAZINE [Concomitant]
  8. SULFAMETHOXAZOLE-TRIMETHOPRIM [Concomitant]
  9. TYLENOL [Concomitant]
  10. VALSARTAN [Concomitant]

REACTIONS (1)
  - Death [None]
